FAERS Safety Report 15722362 (Version 1)
Quarter: 2018Q4

REPORT INFORMATION
  Report Type: Spontaneous
  Country: US (occurrence: US)
  Receive Date: 20181130
  Receipt Date: 20181130
  Transmission Date: 20190205
  Serious: No
  Sender: FDA-Public Use
  Company Number: None

PATIENT
  Age: 6 Year
  Sex: Female

DRUGS (1)
  1. NORDITROPIN [Suspect]
     Active Substance: SOMATROPIN
     Indication: HYPOPITUITARISM
     Dosage: ?          OTHER STRENGTH:10/1.5 MG/M;OTHER FREQUENCY:6 DAYS A WEEK;?
     Route: 058
     Dates: start: 20170818

REACTIONS (2)
  - Eating disorder [None]
  - Mood altered [None]

NARRATIVE: CASE EVENT DATE: 20180701
